FAERS Safety Report 5768683-1 (Version None)
Quarter: 2008Q2

REPORT INFORMATION
  Report Type: 
  Country: None (occurrence: None)
  Receive Date: 20080612
  Receipt Date: 20080519
  Transmission Date: 20081010
  Serious: No
  Sender: FDA-Public Use
  Company Number: US-BOEHRINGER INGELHEIM GMBH, GERMANY-2008-BP-07777BP

PATIENT
  Sex: Male

DRUGS (4)
  1. FLOMAX [Suspect]
     Indication: BENIGN PROSTATIC HYPERPLASIA
     Route: 048
     Dates: start: 20080512
  2. METFORMIN HCL [Concomitant]
  3. ACTOS [Concomitant]
  4. LIPITOR [Concomitant]

REACTIONS (2)
  - LIMB INJURY [None]
  - LOSS OF CONSCIOUSNESS [None]
